FAERS Safety Report 5427954-9 (Version None)
Quarter: 2007Q3

REPORT INFORMATION
  Report Type: 
  Country: None (occurrence: None)
  Receive Date: 20070828
  Receipt Date: 20070820
  Transmission Date: 20080115
  Serious: Yes (Death, Other)
  Sender: FDA-Public Use
  Company Number: CH-PFIZER INC-2007068569

PATIENT
  Sex: Male
  Weight: 95 kg

DRUGS (8)
  1. ATORVASTATIN CALCIUM [Suspect]
     Route: 048
  2. AMLODIPINE [Suspect]
     Route: 048
  3. LOSARTAN POTASSIUM [Suspect]
     Route: 048
  4. ASPIRIN [Concomitant]
     Dosage: DAILY DOSE:100MG
     Route: 048
  5. NEBILET [Concomitant]
     Dosage: DAILY DOSE:5MG
     Route: 048
  6. TORSEMIDE [Concomitant]
     Dosage: DAILY DOSE:10MG
     Route: 048
  7. HUMALOG [Concomitant]
     Dosage: FREQ:AS NECESSARY
     Route: 058
  8. TRANSIPEG [Concomitant]
     Dosage: FREQ:ONCE DAILY
     Route: 048

REACTIONS (2)
  - CEREBRAL HAEMORRHAGE [None]
  - THROMBOCYTOPENIC PURPURA [None]
